FAERS Safety Report 6086082-2 (Version None)
Quarter: 2009Q1

REPORT INFORMATION
  Report Type: 
  Country: None (occurrence: None)
  Receive Date: 20090220
  Receipt Date: 20090210
  Transmission Date: 20090719
  Serious: Yes (Other)
  Sender: FDA-Public Use
  Company Number: PHHY2009CA05621

PATIENT
  Sex: Female

DRUGS (2)
  1. TEGRETOL [Suspect]
  2. TYLENOL [Interacting]

REACTIONS (2)
  - DRUG INTERACTION [None]
  - STATUS EPILEPTICUS [None]
